FAERS Safety Report 17824339 (Version 2)
Quarter: 2020Q2

REPORT INFORMATION
  Report Type: Spontaneous
  Country: US (occurrence: US)
  Receive Date: 20200526
  Receipt Date: 20200605
  Transmission Date: 20200714
  Serious: Yes (Hospitalization, Other)
  Sender: FDA-Public Use
  Company Number: US-PFIZER INC-2020205858

PATIENT
  Age: 24 Year
  Sex: Male
  Weight: 59.87 kg

DRUGS (11)
  1. INFLECTRA [Suspect]
     Active Substance: INFLIXIMAB-DYYB
     Indication: COLITIS ULCERATIVE
     Dosage: 5 MG/KG, MONTHLY
     Route: 065
     Dates: start: 20191016
  2. INFLECTRA [Suspect]
     Active Substance: INFLIXIMAB-DYYB
     Dosage: UNK (THIRD DOSE)
     Route: 065
  3. INFLECTRA [Suspect]
     Active Substance: INFLIXIMAB-DYYB
     Dosage: UNK
     Route: 065
     Dates: start: 201910
  4. MERCAPTOPURINE. [Suspect]
     Active Substance: MERCAPTOPURINE
     Dosage: UNK, WEEKLY
     Route: 065
  5. METHOTREXATE SODIUM. [Suspect]
     Active Substance: METHOTREXATE SODIUM
     Dosage: UNK UNK, WEEKLY[ONCE A WEEK]
     Route: 065
     Dates: end: 201912
  6. MULTIVITAMINS [VITAMINS NOS] [Concomitant]
     Active Substance: VITAMINS
     Dosage: UNK
  7. INFLECTRA [Suspect]
     Active Substance: INFLIXIMAB-DYYB
     Dosage: UNK (SECOND DOSE)
     Route: 065
  8. INFLECTRA [Suspect]
     Active Substance: INFLIXIMAB-DYYB
     Dosage: UNK (FOURTH DOSE)
     Route: 065
  9. INFLECTRA [Suspect]
     Active Substance: INFLIXIMAB-DYYB
     Dosage: 10 MG/KG, MONTHLY (10 MG/KG AT THE END OF JAN 2020, EVERY FOUR WEEKS)
     Route: 065
     Dates: start: 202001
  10. PREDNISONE. [Suspect]
     Active Substance: PREDNISONE
     Dosage: UNK (WEANING OFF THE PREDNISONE ON 26NOV2019)
     Route: 065
     Dates: end: 20191126
  11. IRON [Concomitant]
     Active Substance: IRON
     Dosage: UNK

REACTIONS (15)
  - Frequent bowel movements [Unknown]
  - Drug level decreased [Unknown]
  - C-reactive protein decreased [Unknown]
  - Haematochezia [Unknown]
  - Dizziness [Unknown]
  - Nasopharyngitis [Unknown]
  - Cytomegalovirus infection [Recovered/Resolved]
  - Off label use [Unknown]
  - Weight decreased [Unknown]
  - Colitis ulcerative [Unknown]
  - Overdose [Unknown]
  - Therapy non-responder [Unknown]
  - Condition aggravated [Unknown]
  - Malaise [Unknown]
  - Muscle spasms [Unknown]

NARRATIVE: CASE EVENT DATE: 20191016
